FAERS Safety Report 14662506 (Version 2)
Quarter: 2018Q4

REPORT INFORMATION
  Report Type: Spontaneous
  Country: IT (occurrence: IT)
  Receive Date: 20180321
  Receipt Date: 20181119
  Transmission Date: 20190204
  Serious: Yes (Hospitalization)
  Sender: FDA-Public Use
  Company Number: IT-KADMON PHARMACEUTICALS, LLC-KAD-201803-01256

PATIENT
  Age: 62 Year
  Sex: Male

DRUGS (4)
  1. SOVALDI [Suspect]
     Active Substance: SOFOSBUVIR
     Dosage: 1 DOSAGE FORMS
     Route: 048
     Dates: start: 20150226
  2. SOVALDI [Suspect]
     Active Substance: SOFOSBUVIR
     Dosage: UNKNOWN
     Route: 048
     Dates: end: 20150812
  3. RIBAVIRIN. [Suspect]
     Active Substance: RIBAVIRIN
     Dosage: 3 DOSAGE FORMS
     Route: 048
     Dates: start: 20150226
  4. RIBAVIRIN. [Suspect]
     Active Substance: RIBAVIRIN
     Dosage: UNKNOWN
     Dates: end: 20150812

REACTIONS (1)
  - Hepatocellular carcinoma [Recovered/Resolved]

NARRATIVE: CASE EVENT DATE: 20170503
